FAERS Safety Report 6547778-9 (Version None)
Quarter: 2010Q1

REPORT INFORMATION
  Report Type: 
  Country: None (occurrence: None)
  Receive Date: 20100124
  Receipt Date: 20091008
  Transmission Date: 20100710
  Serious: No
  Sender: FDA-Public Use
  Company Number: US-ALEXION-A200900799

PATIENT
  Sex: Female

DRUGS (9)
  1. SOLIRIS [Suspect]
     Indication: PAROXYSMAL NOCTURNAL HAEMOGLOBINURIA
     Dosage: 600 MG, QW
     Route: 042
     Dates: start: 20070530, end: 20070620
  2. SOLIRIS [Suspect]
     Dosage: 900 MG, Q2W
     Route: 042
     Dates: start: 20070628
  3. ARIXTRA [Concomitant]
     Indication: HEPARIN-INDUCED THROMBOCYTOPENIA
     Dosage: 5 MG, QD
     Route: 048
  4. ATIVAN [Concomitant]
     Dosage: 0.5 MG, PRN
     Route: 048
  5. EXJADE [Concomitant]
     Indication: PROPHYLAXIS
     Dosage: 250 MG, X 8 QD
     Route: 048
  6. IBUPROFEN [Concomitant]
     Dosage: UNK
     Route: 048
  7. LUNESTA [Concomitant]
     Dosage: 2 MG, QD
     Route: 048
  8. OXYCODONE [Concomitant]
     Dosage: 5 MG, QD
     Route: 048
  9. OXYCONTIN [Concomitant]
     Dosage: 40 MG, BID
     Route: 048

REACTIONS (1)
  - HAEMOGLOBIN DECREASED [None]
